FAERS Safety Report 9438689 (Version 1)
Quarter: 2013Q3

REPORT INFORMATION
  Report Type: Spontaneous
  Country: US (occurrence: US)
  Receive Date: 20130802
  Receipt Date: 20130802
  Transmission Date: 20140515
  Serious: Yes (Other)
  Sender: FDA-Public Use
  Company Number: CHPA2013US012102

PATIENT
  Age: 75 Year
  Sex: Female

DRUGS (2)
  1. PERDIEM FIBER [Suspect]
     Indication: CONSTIPATION
     Dosage: 1 TSP, QD
     Route: 048
     Dates: start: 1985
  2. PERDIEM OVERNIGHT RELIEF PILLS [Suspect]
     Indication: CONSTIPATION
     Dosage: 2 DF, QD
     Route: 048

REACTIONS (2)
  - Macular degeneration [Not Recovered/Not Resolved]
  - Incorrect drug administration duration [Unknown]
